FAERS Safety Report 8393708 (Version 3)
Quarter: 2012Q4

REPORT INFORMATION
  Report Type: 
  Country: NO (occurrence: NO)
  Receive Date: 20120207
  Receipt Date: 20121003
  Transmission Date: 20130627
  Serious: Yes (Life-Threatening, Hospitalization)
  Sender: FDA-Public Use
  Company Number: NO-ROCHE-1037215

PATIENT
  Age: 53 Year
  Sex: Male
  Weight: 100 kg

DRUGS (6)
  1. ROACTEMRA [Suspect]
     Indication: RHEUMATOID ARTHRITIS
     Dosage: Date of latest dose:03/Jan/2012
     Route: 065
     Dates: start: 20101004, end: 20120103
  2. METHOTREXATE [Concomitant]
     Route: 065
  3. LIPITOR [Concomitant]
     Route: 065
  4. COAPROVEL [Concomitant]
     Indication: HYPERTENSION
  5. DISPRIL [Concomitant]
  6. PLAVIX [Concomitant]
     Dosage: for 9 months
     Route: 065

REACTIONS (1)
  - Myocardial infarction [Recovered/Resolved]
